FAERS Safety Report 17568416 (Version 1)
Quarter: 2020Q1

REPORT INFORMATION
  Report Type: Spontaneous
  Country: US (occurrence: US)
  Receive Date: 20200320
  Receipt Date: 20200320
  Transmission Date: 20200409
  Serious: No
  Sender: FDA-Public Use
  Company Number: US-VERTEX PHARMACEUTICALS-2020-001538

PATIENT
  Sex: Female
  Weight: 68 kg

DRUGS (1)
  1. TRIKAFTA [Suspect]
     Active Substance: ELEXACAFTOR\IVACAFTOR\TEZACAFTOR
     Indication: CYSTIC FIBROSIS
     Dosage: 2 TAB (ELEXACAFTOR 100MG/ TEZACAFTOR 50MG/ IVACACAFTOR 75MG) AM; 1 TAB (IVACAFTOR 150MG) PM
     Route: 048
     Dates: start: 20191202, end: 20200130

REACTIONS (1)
  - Drug ineffective [Unknown]
